FAERS Safety Report 11640395 (Version 1)
Quarter: 2015Q4

REPORT INFORMATION
  Report Type: Spontaneous
  Country: US (occurrence: None)
  Receive Date: 20151016
  Receipt Date: 20151016
  Transmission Date: 20160304
  Serious: Yes (Disabling)
  Sender: FDA-Public Use
  Company Number: None

PATIENT
  Age: 37 Year
  Sex: Male
  Weight: 81.65 kg

DRUGS (1)
  1. CIPRO [Suspect]
     Active Substance: CIPROFLOXACIN HYDROCHLORIDE
     Indication: DYSURIA
     Dosage: 1 PILL TWICE DAILY
     Route: 048
     Dates: start: 20150807, end: 20150904

REACTIONS (1)
  - Arthralgia [None]

NARRATIVE: CASE EVENT DATE: 20150807
